FAERS Safety Report 11288862 (Version 1)
Quarter: 2015Q3

REPORT INFORMATION
  Report Type: Spontaneous
  Country: US (occurrence: US)
  Receive Date: 20150721
  Receipt Date: 20150721
  Transmission Date: 20151125
  Serious: No
  Sender: FDA-Public Use
  Company Number: US-UNITED THERAPEUTICS-UNT-2015-004119

PATIENT
  Sex: Female
  Weight: 67.57 kg

DRUGS (3)
  1. ADCIRCA [Concomitant]
     Active Substance: TADALAFIL
     Indication: PRODUCT USED FOR UNKNOWN INDICATION
  2. REMODULIN [Suspect]
     Active Substance: TREPROSTINIL
     Indication: PULMONARY ARTERIAL HYPERTENSION
     Dosage: 0.030 ?G/KG/MIN, CONTINUING
     Route: 058
     Dates: start: 20140903
  3. REMODULIN [Suspect]
     Active Substance: TREPROSTINIL
     Dosage: 0.032 ?G/KG/MIN, CONTINUING
     Route: 041
     Dates: start: 20141219

REACTIONS (5)
  - Infusion site pain [Not Recovered/Not Resolved]
  - Infusion site infection [Unknown]
  - Infusion site pustule [Not Recovered/Not Resolved]
  - Dermatitis contact [Unknown]
  - Infusion site rash [Not Recovered/Not Resolved]
